FAERS Safety Report 5120443-0 (Version None)
Quarter: 2006Q4

REPORT INFORMATION
  Report Type: 
  Country: None (occurrence: None)
  Receive Date: 20061004
  Receipt Date: 20050204
  Transmission Date: 20070319
  Serious: Yes (Hospitalization, Disabling)
  Sender: FDA-Public Use
  Company Number: US-ROCHE-394804

PATIENT
  Age: 26 Year
  Sex: Male
  Weight: 81.6 kg

DRUGS (1)
  1. ACCUTANE [Suspect]
     Indication: ACNE
     Route: 048
     Dates: start: 19860615, end: 19950615

REACTIONS (22)
  - ABDOMINAL PAIN [None]
  - ANAEMIA [None]
  - ANAL FISSURE [None]
  - ANXIETY [None]
  - COLITIS [None]
  - COLITIS ULCERATIVE [None]
  - DYSPEPSIA [None]
  - DYSPNOEA [None]
  - EMOTIONAL DISTRESS [None]
  - FLATULENCE [None]
  - GASTROINTESTINAL DISORDER [None]
  - HAEMATOCHEZIA [None]
  - ILEOSTOMY [None]
  - ILEUS [None]
  - INFLAMMATORY BOWEL DISEASE [None]
  - INTESTINAL HAEMORRHAGE [None]
  - IRRITABLE BOWEL SYNDROME [None]
  - MULTI-ORGAN DISORDER [None]
  - PROCTALGIA [None]
  - PRURITUS ANI [None]
  - RECTAL HAEMORRHAGE [None]
  - SINUS TACHYCARDIA [None]
